FAERS Safety Report 21647825 (Version 1)
Quarter: 2022Q4

REPORT INFORMATION
  Report Type: Other
  Country: US (occurrence: None)
  Receive Date: 20221128
  Receipt Date: 20221128
  Transmission Date: 20230113
  Serious: Yes (Other)
  Sender: FDA-Public Use
  Company Number: US-ROCHE-3175451

PATIENT
  Age: 39 Year
  Sex: Male

DRUGS (1)
  1. OCREVUS [Suspect]
     Active Substance: OCRELIZUMAB
     Indication: Multiple sclerosis
     Dosage: EVERY 6 MONTHS
     Route: 065
     Dates: start: 201811

REACTIONS (5)
  - Migraine [Unknown]
  - Anxiety [Unknown]
  - Depression [Unknown]
  - Drug ineffective [Unknown]
  - Relapsing multiple sclerosis [Unknown]

NARRATIVE: CASE EVENT DATE: 20220904
